FAERS Safety Report 5395166-3 (Version None)
Quarter: 2007Q3

REPORT INFORMATION
  Report Type: 
  Country: None (occurrence: None)
  Receive Date: 20070724
  Receipt Date: 20070719
  Transmission Date: 20080115
  Serious: Yes (Other)
  Sender: FDA-Public Use
  Company Number: HQWYE150019JUL07

PATIENT
  Age: 56 Year
  Sex: Female

DRUGS (1)
  1. CORDARONE [Suspect]
     Indication: ATRIAL FIBRILLATION
     Route: 042

REACTIONS (2)
  - ASTHENIA [None]
  - MYOPATHY [None]
